FAERS Safety Report 6382091-4 (Version None)
Quarter: 2009Q3

REPORT INFORMATION
  Report Type: 
  Country: None (occurrence: None)
  Receive Date: 20090930
  Receipt Date: 20090921
  Transmission Date: 20100115
  Serious: Yes (Hospitalization)
  Sender: FDA-Public Use
  Company Number: PHHY2009FR38507

PATIENT
  Sex: Female
  Weight: 47 kg

DRUGS (8)
  1. EXELON [Suspect]
     Dosage: 4.5 MG IN THE MORNING AND 6 MG IN THE EVENING
     Route: 048
     Dates: end: 20090818
  2. ATARAX [Concomitant]
     Dosage: UNK
  3. TERALITHE [Concomitant]
     Dosage: UNK
  4. ZOPICLONE [Concomitant]
     Dosage: UNK
  5. PROZAC [Concomitant]
     Dosage: UNK
  6. LEVOTHYROXINE SODIUM [Concomitant]
     Dosage: UNK
  7. NITROGLYCERIN [Concomitant]
     Dosage: UNK
  8. EBIXA [Concomitant]
     Dosage: UNK

REACTIONS (8)
  - AMYOTROPHIC LATERAL SCLEROSIS [None]
  - DYSPHAGIA [None]
  - GENERAL PHYSICAL HEALTH DETERIORATION [None]
  - INCREASED BRONCHIAL SECRETION [None]
  - LACRIMATION INCREASED [None]
  - RENAL FAILURE [None]
  - SALIVARY HYPERSECRETION [None]
  - WEIGHT DECREASED [None]
